FAERS Safety Report 4861593-3 (Version None)
Quarter: 2005Q4

REPORT INFORMATION
  Report Type: 
  Country: None (occurrence: None)
  Receive Date: 20051216
  Receipt Date: 20051207
  Transmission Date: 20060501
  Serious: Yes (Death, Hospitalization)
  Sender: FDA-Public Use
  Company Number: FR200512001206

PATIENT
  Age: 21 Year
  Sex: Female

DRUGS (1)
  1. HUMATROPE [Suspect]
     Indication: HYPOPITUITARISM
     Dosage: SUBCUTANEOUS
     Route: 058
     Dates: start: 20020601

REACTIONS (6)
  - ACUTE TONSILLITIS [None]
  - ANGINA PECTORIS [None]
  - COMA [None]
  - DISSEMINATED INTRAVASCULAR COAGULATION [None]
  - STREPTOCOCCAL SEPSIS [None]
  - TOXIC SHOCK SYNDROME STREPTOCOCCAL [None]
